FAERS Safety Report 4541171-6 (Version None)
Quarter: 2004Q4

REPORT INFORMATION
  Report Type: 
  Country: None (occurrence: None)
  Receive Date: 20041227
  Receipt Date: 20041220
  Transmission Date: 20050328
  Serious: Yes (Life-Threatening)
  Sender: FDA-Public Use
  Company Number: FRWYE294120DEC04

PATIENT
  Age: 77 Year
  Sex: Female

DRUGS (6)
  1. EFFEXOR [Suspect]
     Indication: DEPRESSION
     Dosage: 100 MG 2X PER 1 DAY
     Route: 048
  2. COVERSYL (PERINDOPRIL) [Suspect]
     Route: 048
  3. FUROSEMIDE [Suspect]
     Route: 048
  4. GLICLAZIDE (GLICLAZIDE) [Suspect]
     Route: 048
  5. PREVISCAN (FLUINDIONE) [Suspect]
     Route: 048
  6. SOTALOL HCL [Suspect]
     Indication: ATRIAL FIBRILLATION
     Route: 048

REACTIONS (3)
  - ACUTE MYELOID LEUKAEMIA [None]
  - PANCYTOPENIA [None]
  - PULMONARY HYPERTENSION [None]
